FAERS Safety Report 5919736-6 (Version None)
Quarter: 2008Q4

REPORT INFORMATION
  Report Type: 
  Country: None (occurrence: None)
  Receive Date: 20081015
  Receipt Date: 20081011
  Transmission Date: 20090506
  Serious: No
  Sender: FDA-Public Use
  Company Number: US-B.I. PHARMACEUTICALS,INC./RIDGEFIELD-2008-BP-15758BP

PATIENT
  Sex: Female

DRUGS (18)
  1. ZANTAC 75 [Suspect]
     Indication: HYPERCHLORHYDRIA
     Dosage: 150MG
     Route: 048
     Dates: start: 20081009
  2. DEPAKOTE [Concomitant]
     Indication: PROPHYLAXIS
     Dosage: 500MG
  3. DIOVAN [Concomitant]
     Indication: CARDIAC DISORDER
  4. CELLCEPT [Concomitant]
     Indication: SYSTEMIC LUPUS ERYTHEMATOSUS
     Dosage: 2000MG
  5. VITAMIN D [Concomitant]
     Dosage: 400U
  6. IRON [Concomitant]
     Dosage: 325MG
  7. HYDROCHLROZIDE [Concomitant]
     Indication: SYSTEMIC LUPUS ERYTHEMATOSUS
  8. METOPROLOL TARTRATE [Concomitant]
     Indication: HYPERTENSION
     Dosage: 25MG
  9. DOCUSATE [Concomitant]
     Dosage: 200MG
  10. MIRTAZAPINE [Concomitant]
     Indication: INSOMNIA
     Dosage: 15MG
  11. PLAVIX [Concomitant]
     Dosage: 75MG
  12. POTASSIUM CHLORIDE [Concomitant]
     Dosage: 20MG
  13. SENNA [Concomitant]
  14. GEMFIBROZIL [Concomitant]
     Indication: BLOOD CHOLESTEROL INCREASED
     Dosage: 600MG
  15. HYDROCHLOROTHIAZIDE [Concomitant]
     Dosage: 25MG
  16. ASPIRIN [Concomitant]
     Dosage: 81MG
  17. LIPITOR [Concomitant]
     Dosage: 25MG
  18. NITROGLYCERIN [Concomitant]
     Indication: CHEST PAIN
     Dosage: 5MG

REACTIONS (1)
  - DRUG INEFFECTIVE [None]
